FAERS Safety Report 9338385 (Version 3)
Quarter: 2013Q3

REPORT INFORMATION
  Report Type: Report from Study
  Country: BR (occurrence: BR)
  Receive Date: 20130610
  Receipt Date: 20130808
  Transmission Date: 20140515
  Serious: Yes (Hospitalization)
  Sender: FDA-Public Use
  Company Number: BR-ROCHE-767563

PATIENT
  Age: 55 Year
  Sex: Female
  Weight: 62 kg

DRUGS (14)
  1. RITUXIMAB [Suspect]
     Indication: PRODUCT USED FOR UNKNOWN INDICATION
     Route: 042
     Dates: start: 200910, end: 201005
  2. ACTEMRA [Suspect]
     Indication: RHEUMATOID ARTHRITIS
     Route: 065
     Dates: start: 20130401
  3. ACETYLSALICYLIC ACID [Concomitant]
     Route: 065
  4. METICORTEN [Concomitant]
     Dosage: REPORTED AS 5-10 MG
     Route: 065
  5. FELDENE [Concomitant]
     Route: 065
  6. BI-PROFENID [Concomitant]
     Route: 065
  7. ATORVASTATIN [Concomitant]
     Route: 065
  8. SEPURIN [Concomitant]
  9. CIPROFIBRATE [Concomitant]
     Route: 065
  10. CLOPIDOGREL BISULFATE [Concomitant]
     Route: 065
  11. ROSUVASTATIN CALCIUM [Concomitant]
     Route: 065
  12. METOPROLOL SUCCINATE [Concomitant]
     Route: 065
  13. EZETIMIBE [Concomitant]
     Route: 065
  14. LANSOPRAZOLE [Concomitant]

REACTIONS (4)
  - Myocardial infarction [Recovered/Resolved]
  - Pain [Recovered/Resolved]
  - Dizziness [Recovered/Resolved]
  - Cardiac disorder [Unknown]
